FAERS Safety Report 8169801-0 (Version None)
Quarter: 2012Q1

REPORT INFORMATION
  Report Type: 
  Country: None (occurrence: None)
  Receive Date: 20120222
  Receipt Date: 20120216
  Transmission Date: 20120608
  Serious: Yes (Life-Threatening)
  Sender: FDA-Public Use
  Company Number: GER/UKI/12/0023043

PATIENT
  Age: 54 Year
  Sex: Male
  Weight: 80 kg

DRUGS (6)
  1. CITALOPRAM HYDROBROMIDE [Concomitant]
  2. OMEPRAZOLE [Concomitant]
  3. DOMPERIDONE (DOMPERIDONE) [Concomitant]
  4. THIAMINE HCL [Concomitant]
  5. TRAMADOL HCL [Concomitant]
  6. OLANZAPINE [Suspect]
     Indication: MENTAL DISORDER
     Dosage: 15 MG, ORAL
     Route: 048
     Dates: end: 20120101

REACTIONS (2)
  - VENTRICULAR FIBRILLATION [None]
  - VENTRICULAR TACHYCARDIA [None]
